FAERS Safety Report 9284171 (Version 1)
Quarter: 2013Q2

REPORT INFORMATION
  Report Type: Spontaneous
  Country: CA (occurrence: CA)
  Receive Date: 20130510
  Receipt Date: 20130510
  Transmission Date: 20140414
  Serious: Yes (Other)
  Sender: FDA-Public Use
  Company Number: CA-ASTRAZENECA-2013SE31544

PATIENT
  Sex: Female

DRUGS (1)
  1. SEROQUEL [Suspect]
     Route: 048

REACTIONS (7)
  - Overdose [Unknown]
  - Convulsion [Unknown]
  - Malaise [Unknown]
  - Activities of daily living impaired [Unknown]
  - Muscle twitching [Unknown]
  - Palpitations [Unknown]
  - Hypersomnia [Unknown]
